FAERS Safety Report 11249619 (Version 1)
Quarter: 2015Q3

REPORT INFORMATION
  Report Type: Spontaneous
  Country: US (occurrence: US)
  Receive Date: 20150708
  Receipt Date: 20150708
  Transmission Date: 20151125
  Serious: Yes (Hospitalization)
  Sender: FDA-Public Use
  Company Number: US-ELI_LILLY_AND_COMPANY-US201006005549

PATIENT
  Sex: Female
  Weight: 85.85 kg

DRUGS (4)
  1. CORTICOSTEROIDS [Concomitant]
     Active Substance: CORTICOSTEROID NOS
     Dosage: 10 MG, UNK
     Route: 042
     Dates: start: 20100609
  2. VITAMIN B12 [Concomitant]
     Active Substance: CYANOCOBALAMIN
     Dosage: 1000 UG, UNK
     Route: 030
     Dates: start: 20100602
  3. FOLIC ACID. [Concomitant]
     Active Substance: FOLIC ACID
     Dosage: 1 MG, DAILY (1/D)
     Dates: start: 20100602
  4. ALIMTA [Suspect]
     Active Substance: PEMETREXED DISODIUM
     Indication: OVARIAN CANCER RECURRENT
     Dosage: 500 MG/M2, OTHER
     Route: 042
     Dates: start: 20100609

REACTIONS (7)
  - Fatigue [Unknown]
  - Off label use [Unknown]
  - Febrile neutropenia [Recovered/Resolved]
  - Night sweats [Unknown]
  - Cough [Unknown]
  - Dyspnoea [Unknown]
  - Anaemia [Recovered/Resolved]
